FAERS Safety Report 8757957 (Version 1)
Quarter: 2012Q4

REPORT INFORMATION
  Report Type: 
  Country: US (occurrence: US)
  Receive Date: 20120828
  Receipt Date: 20120828
  Transmission Date: 20130627
  Serious: No
  Sender: FDA-Public Use
  Company Number: US-PFIZER INC-2012207963

PATIENT
  Age: 61 Year
  Sex: Male
  Weight: 87.08 kg

DRUGS (6)
  1. PRISTIQ [Suspect]
     Indication: DEPRESSION
     Dosage: 50 mg, 1x/day
     Route: 048
     Dates: start: 201207, end: 20120822
  2. AMLODIPINE [Concomitant]
     Dosage: UNK
  3. BYSTOLIC [Concomitant]
     Dosage: UNK
  4. CRESTOR [Concomitant]
     Dosage: UNK
  5. OMEPRAZOLE [Concomitant]
     Dosage: UNK
  6. TEKTURNA [Concomitant]
     Dosage: UNK

REACTIONS (1)
  - Medication residue [Unknown]
